FAERS Safety Report 15657407 (Version 2)
Quarter: 2018Q4

REPORT INFORMATION
  Report Type: Spontaneous
  Country: DE (occurrence: DE)
  Receive Date: 20181126
  Receipt Date: 20181128
  Transmission Date: 20190205
  Serious: Yes (Life-Threatening, Hospitalization, Other)
  Sender: FDA-Public Use
  Company Number: DE-SAKK-2018SA318070AA

PATIENT
  Age: 69 Year
  Sex: Male

DRUGS (2)
  1. DOCETAXEL. [Suspect]
     Active Substance: DOCETAXEL
     Indication: METASTASES TO BONE
  2. DOCETAXEL. [Suspect]
     Active Substance: DOCETAXEL
     Indication: PROSTATE CANCER
     Dosage: UNK

REACTIONS (11)
  - Gangrene [Unknown]
  - Abdominal pain upper [Unknown]
  - Cellulitis [Unknown]
  - Diarrhoea [Unknown]
  - Eubacterium infection [Recovering/Resolving]
  - Adhesion [Unknown]
  - General physical health deterioration [Unknown]
  - Cholecystitis infective [Recovering/Resolving]
  - Anaemia [Unknown]
  - Cholecystitis infective [Unknown]
  - Bacterial infection [Unknown]
